FAERS Safety Report 8255361-2 (Version None)
Quarter: 2012Q2

REPORT INFORMATION
  Report Type: 
  Country: None (occurrence: None)
  Receive Date: 20120403
  Receipt Date: 20120326
  Transmission Date: 20120825
  Serious: Yes (Hospitalization)
  Sender: FDA-Public Use
  Company Number: US-BAYER-2011-121058

PATIENT
  Age: 18 Year
  Sex: Female
  Weight: 58.957 kg

DRUGS (9)
  1. HYDROCODONE BITARTRATE [Concomitant]
     Indication: BACK PAIN
     Dosage: UNK UNK, QD
     Dates: start: 20101113, end: 20101119
  2. CARISOPRODOL [Concomitant]
     Indication: BACK PAIN
     Dosage: UNK UNK, QD
     Dates: start: 20101113, end: 20101119
  3. METOPROLOL TARTRATE [Concomitant]
     Indication: ANXIETY
     Dosage: 25 MG, UNK
     Dates: start: 20101102
  4. DIFFERIN [Concomitant]
  5. MEDROL [Concomitant]
  6. DROSPIRENONE AND ETHINYL ESTRADIOL [Suspect]
     Indication: ACNE
     Dosage: UNK
     Dates: start: 20100301, end: 20101117
  7. ACCUTANE [Concomitant]
     Dosage: 40 MG, UNK
     Dates: start: 20100601, end: 20101101
  8. NSAID'S [Concomitant]
     Dosage: UNK UNK, PRN
     Dates: start: 20101101
  9. CYCLOBENZAPRINE HCL [Concomitant]
     Dosage: 10 MG, UNK
     Dates: start: 20100901

REACTIONS (9)
  - GENERAL PHYSICAL HEALTH DETERIORATION [None]
  - EMOTIONAL DISTRESS [None]
  - OEDEMA PERIPHERAL [None]
  - ANXIETY [None]
  - BACK PAIN [None]
  - PAIN [None]
  - PULMONARY EMBOLISM [None]
  - PAIN IN EXTREMITY [None]
  - DEEP VEIN THROMBOSIS [None]
